FAERS Safety Report 5999220-4 (Version None)
Quarter: 2008Q4

REPORT INFORMATION
  Report Type: 
  Country: None (occurrence: None)
  Receive Date: 20081211
  Receipt Date: 20081126
  Transmission Date: 20090506
  Serious: Yes (Death, Hospitalization)
  Sender: FDA-Public Use
  Company Number: KV200800627

PATIENT
  Age: 84 Year
  Sex: Female
  Weight: 81.6 kg

DRUGS (1)
  1. ISOSORBIDE MONONITRATE [Suspect]
     Indication: ANGINA PECTORIS
     Dosage: QD, ORAL
     Route: 048
     Dates: start: 20010101

REACTIONS (6)
  - BLOOD PRESSURE DECREASED [None]
  - CARDIAC FAILURE [None]
  - CHEST PAIN [None]
  - DIZZINESS [None]
  - PRODUCT QUALITY ISSUE [None]
  - VOMITING [None]
